FAERS Safety Report 5514692-7 (Version None)
Quarter: 2007Q4

REPORT INFORMATION
  Report Type: 
  Country: None (occurrence: None)
  Receive Date: 20071113
  Receipt Date: 20071101
  Transmission Date: 20080405
  Serious: Yes (Hospitalization, Other)
  Sender: FDA-Public Use
  Company Number: US-PFIZER INC-2007092411

PATIENT
  Sex: Male

DRUGS (1)
  1. DILANTIN [Suspect]
     Route: 048

REACTIONS (9)
  - ABDOMINAL PAIN [None]
  - ASPIRATION [None]
  - CONVULSION [None]
  - DIZZINESS [None]
  - MALAISE [None]
  - MUSCULOSKELETAL STIFFNESS [None]
  - MYALGIA [None]
  - PNEUMONIA [None]
  - VOMITING [None]
